FAERS Safety Report 12354982 (Version 2)
Quarter: 2016Q2

REPORT INFORMATION
  Report Type: Spontaneous
  Country: US (occurrence: US)
  Receive Date: 20160511
  Receipt Date: 20160511
  Transmission Date: 20160815
  Serious: Yes (Other)
  Sender: FDA-Public Use
  Company Number: US-TEVA-659119ACC

PATIENT
  Sex: Female

DRUGS (1)
  1. PARAGARD T 380A [Suspect]
     Active Substance: COPPER
     Indication: CONTRACEPTION
     Dates: start: 20160123

REACTIONS (3)
  - Abortion induced [Unknown]
  - Device expulsion [Recovered/Resolved]
  - Pregnancy on contraceptive [Unknown]

NARRATIVE: CASE EVENT DATE: 20160308
